FAERS Safety Report 4864287-3 (Version None)
Quarter: 2005Q4

REPORT INFORMATION
  Report Type: 
  Country: None (occurrence: None)
  Receive Date: 20051220
  Receipt Date: 20051220
  Transmission Date: 20060501
  Serious: Yes (Death)
  Sender: FDA-Public Use
  Company Number: None

PATIENT
  Age: 37 Year
  Sex: Female
  Weight: 101.1521 kg

DRUGS (1)
  1. DOCETAXEL 75MG/M2 - 165 MG [Suspect]
     Dosage: 165 MG Q 2 WK IV
     Route: 042
     Dates: start: 20051212

REACTIONS (4)
  - GASTROINTESTINAL NECROSIS [None]
  - INTESTINAL ISCHAEMIA [None]
  - KETOACIDOSIS [None]
  - PROCEDURAL COMPLICATION [None]
